FAERS Safety Report 15310195 (Version 1)
Quarter: 2018Q3

REPORT INFORMATION
  Report Type: Spontaneous
  Country: US (occurrence: US)
  Receive Date: 20180823
  Receipt Date: 20180823
  Transmission Date: 20181010
  Serious: No
  Sender: FDA-Public Use
  Company Number: US-PFIZER INC-2018340360

PATIENT
  Age: 64 Year
  Sex: Female
  Weight: 47.17 kg

DRUGS (1)
  1. GABAPENTIN. [Suspect]
     Active Substance: GABAPENTIN
     Dosage: 300 MG, 1X/DAY(300 MG BY MOUTH AT BEDTIME)
     Route: 048

REACTIONS (2)
  - Drug ineffective [Unknown]
  - Somnolence [Unknown]
